FAERS Safety Report 5701119-5 (Version None)
Quarter: 2008Q2

REPORT INFORMATION
  Report Type: 
  Country: None (occurrence: None)
  Receive Date: 20080407
  Receipt Date: 20080219
  Transmission Date: 20081010
  Serious: Yes (Other)
  Sender: FDA-Public Use
  Company Number: 2008AL001746

PATIENT
  Age: 21 Year
  Sex: Male

DRUGS (4)
  1. IBUPROFEN [Suspect]
     Dosage: 3200 MG; X1; PO
     Route: 048
     Dates: start: 20080128, end: 20080128
  2. SUDAFED 12 HOUR [Concomitant]
  3. ANTIHISTAMINES [Concomitant]
  4. ALCOHOL [Concomitant]

REACTIONS (4)
  - ALCOHOL ABUSE [None]
  - DEHYDRATION [None]
  - MULTIPLE DRUG OVERDOSE [None]
  - TACHYCARDIA [None]
